FAERS Safety Report 6532588-9 (Version None)
Quarter: 2010Q1

REPORT INFORMATION
  Report Type: 
  Country: None (occurrence: None)
  Receive Date: 20100111
  Receipt Date: 20100104
  Transmission Date: 20100710
  Serious: Yes (Congenital Anomaly, Other)
  Sender: FDA-Public Use
  Company Number: IT-ROCHE-677344

PATIENT
  Age: 32 Year
  Sex: Female
  Weight: 60 kg

DRUGS (1)
  1. ROACCUTANE [Suspect]
     Indication: ACNE
     Dosage: DRUG STOPPED IN THE END OF MAY 2008.
     Route: 065
     Dates: start: 20071001, end: 20080525

REACTIONS (2)
  - ABORTION INDUCED [None]
  - CONJOINED TWINS [None]
